FAERS Safety Report 8894865 (Version 2)
Quarter: 2012Q4

REPORT INFORMATION
  Report Type: 
  Country: US (occurrence: US)
  Receive Date: 20121108
  Receipt Date: 20121206
  Transmission Date: 20130627
  Serious: Yes (Other)
  Sender: FDA-Public Use
  Company Number: PHEH2012US019999

PATIENT
  Sex: Female

DRUGS (7)
  1. EXJADE [Suspect]
     Indication: THALASSAEMIA
     Dosage: UNK UKN, UNK
     Dates: start: 2012
  2. DESFERAL [Suspect]
     Dosage: 2 g, UNK
     Route: 058
     Dates: start: 1990, end: 20120820
  3. VITAMIN E [Concomitant]
     Dosage: UNK UKN, UNK
  4. VITAMIN D [Concomitant]
     Dosage: UNK UKN, UNK
  5. FOLIC ACID [Concomitant]
     Dosage: UNK UKN, UNK
  6. LANSOPRAZOLE [Concomitant]
     Dosage: UNK UKN, UNK
  7. CONCENTRATED RED CELLS [Concomitant]
     Dosage: UNK UKN, UNK

REACTIONS (14)
  - Depression [Unknown]
  - Blindness [Unknown]
  - Burning sensation [Unknown]
  - Back pain [Unknown]
  - Arthralgia [Unknown]
  - Asthenia [Unknown]
  - Migraine [Unknown]
  - Hypersensitivity [Unknown]
  - Abdominal discomfort [Unknown]
  - Blood iron increased [Unknown]
  - Fatigue [Unknown]
  - Nervousness [Unknown]
  - Dizziness [Unknown]
  - Headache [Unknown]
